FAERS Safety Report 8128929-1 (Version None)
Quarter: 2012Q1

REPORT INFORMATION
  Report Type: 
  Country: None (occurrence: None)
  Receive Date: 20120210
  Receipt Date: 20110602
  Transmission Date: 20120608
  Serious: No
  Sender: FDA-Public Use
  Company Number: US-BRISTOL-MYERS SQUIBB COMPANY-15802879

PATIENT
  Age: 63 Year
  Sex: Female

DRUGS (1)
  1. ORENCIA [Suspect]
     Indication: RHEUMATOID ARTHRITIS
     Dosage: 1 DF = 500 UNIT NOT MENTIONED,ORENCIA STARTED ON BEGINING OF THE MAY

REACTIONS (3)
  - HEADACHE [None]
  - FATIGUE [None]
  - BLOOD PRESSURE INCREASED [None]
